FAERS Safety Report 6106342-6 (Version None)
Quarter: 2009Q1

REPORT INFORMATION
  Report Type: 
  Country: None (occurrence: None)
  Receive Date: 20090306
  Receipt Date: 20090304
  Transmission Date: 20090719
  Serious: Yes (Death, Hospitalization, Other)
  Sender: FDA-Public Use
  Company Number: PHHY2007MX01029

PATIENT
  Sex: Female

DRUGS (4)
  1. DIOVAN [Suspect]
     Indication: HYPERTENSION
     Dosage: 160 MG, QD
     Dates: start: 20060501
  2. JANUVIA [Concomitant]
  3. INSULIN [Concomitant]
  4. RANITIDINE [Concomitant]

REACTIONS (6)
  - ANAEMIA [None]
  - DIABETIC RETINOPATHY [None]
  - RENAL DISORDER [None]
  - RENAL FAILURE [None]
  - VISUAL ACUITY REDUCED [None]
  - VITRECTOMY [None]
